FAERS Safety Report 7420819-2 (Version None)
Quarter: 2011Q2

REPORT INFORMATION
  Report Type: 
  Country: None (occurrence: None)
  Receive Date: 20110418
  Receipt Date: 20110411
  Transmission Date: 20111010
  Serious: Yes (Other)
  Sender: FDA-Public Use
  Company Number: GB-TEVA-276456ISR

PATIENT
  Age: 48 Year
  Sex: Male

DRUGS (5)
  1. PREDNISOLONE [Suspect]
     Indication: LUNG TRANSPLANT
  2. CYCLOSPORINE [Suspect]
     Indication: LUNG TRANSPLANT
     Dosage: 375 MILLIGRAM; TAPERED FROM 1 TO 0.2 MG/KG/DAY AT DISCHARGE ON DAY 25
  3. METHYLPREDNISOLONE [Suspect]
     Indication: LUNG TRANSPLANT
     Dosage: 375 MILLIGRAM; TAPERED FROM 1 TO 0.2 MG/KG/DAY AT DISCHARGE ON DAY 25
  4. MYCOPHENOLIC ACID [Suspect]
     Indication: LUNG TRANSPLANT
     Dosage: 2.25 GRAM;
  5. ANTITHYMOCYTE IMMUNOGLOBULIN [Suspect]
     Indication: LUNG TRANSPLANT
     Dosage: 375 MILLIGRAM; TAPERED FROM 1 TO 0.2 MG/KG/DAY AT DISCHARGE ON DAY 25

REACTIONS (2)
  - CYTOMEGALOVIRUS INFECTION [None]
  - AORTIC DISSECTION [None]
